FAERS Safety Report 4843667-6 (Version None)
Quarter: 2005Q4

REPORT INFORMATION
  Report Type: 
  Country: None (occurrence: None)
  Receive Date: 20051202
  Receipt Date: 20051013
  Transmission Date: 20060501
  Serious: Yes (Hospitalization)
  Sender: FDA-Public Use
  Company Number: 2005CG01709

PATIENT
  Age: 81 Year
  Sex: Female

DRUGS (6)
  1. ZESTORETIC [Suspect]
     Dosage: 60 + 37.5 QD
     Route: 048
     Dates: end: 20050701
  2. KALEORID [Concomitant]
     Route: 048
  3. TARDYFERON [Concomitant]
     Route: 048
  4. VASTEN [Concomitant]
     Route: 048
  5. PLAVIX [Concomitant]
     Route: 048
  6. SOTALOL HCL [Concomitant]
     Route: 048

REACTIONS (10)
  - ACCIDENTAL OVERDOSE [None]
  - CONFUSIONAL STATE [None]
  - DEHYDRATION [None]
  - DISORIENTATION [None]
  - GENERAL PHYSICAL HEALTH DETERIORATION [None]
  - HALLUCINATION [None]
  - HYPONATRAEMIA [None]
  - INAPPROPRIATE SCHEDULE OF DRUG ADMINISTRATION [None]
  - PSYCHOMOTOR RETARDATION [None]
  - VOMITING [None]
